FAERS Safety Report 6833583-2 (Version None)
Quarter: 2010Q3

REPORT INFORMATION
  Report Type: 
  Country: None (occurrence: None)
  Receive Date: 20100712
  Receipt Date: 20100629
  Transmission Date: 20110219
  Serious: Yes (Hospitalization)
  Sender: FDA-Public Use
  Company Number: JP-ELI_LILLY_AND_COMPANY-JP201006007708

PATIENT
  Sex: Male

DRUGS (2)
  1. ZYPREXA [Suspect]
     Indication: SCHIZOPHRENIA
     Dosage: 20 MG, DAILY (1/D)
     Route: 048
  2. ABILIFY [Concomitant]
     Indication: SCHIZOPHRENIA
     Dosage: 30 MG, DAILY (1/D)
     Route: 048

REACTIONS (1)
  - SCHIZOPHRENIA [None]
